FAERS Safety Report 7069111-9 (Version None)
Quarter: 2010Q4

REPORT INFORMATION
  Report Type: 
  Country: None (occurrence: None)
  Receive Date: 20101028
  Receipt Date: 20101021
  Transmission Date: 20110411
  Serious: Yes (Death, Hospitalization)
  Sender: FDA-Public Use
  Company Number: A0833521A

PATIENT
  Age: 65 Year
  Sex: Male

DRUGS (5)
  1. AVANDIA [Suspect]
     Indication: DIABETES MELLITUS
     Dosage: 8U PER DAY
     Route: 048
     Dates: start: 20050101, end: 20080615
  2. AVANDAMET [Suspect]
     Route: 048
  3. NORVASC [Concomitant]
  4. METFORMIN [Concomitant]
  5. HUMALOG [Concomitant]

REACTIONS (7)
  - ACUTE RESPIRATORY FAILURE [None]
  - CARDIAC FAILURE CONGESTIVE [None]
  - CARDIOVASCULAR DISORDER [None]
  - DEATH [None]
  - HAEMORRHAGIC STROKE [None]
  - HEMIPLEGIA [None]
  - PULMONARY EMBOLISM [None]
